FAERS Safety Report 6609425-7 (Version None)
Quarter: 2010Q1

REPORT INFORMATION
  Report Type: 
  Country: None (occurrence: None)
  Receive Date: 20100224
  Receipt Date: 20100209
  Transmission Date: 20100710
  Serious: Yes (Other)
  Sender: FDA-Public Use
  Company Number: 006855

PATIENT
  Sex: Female
  Weight: 59 kg

DRUGS (2)
  1. KEPPRA [Suspect]
     Indication: EPILEPSY
     Dosage: 500 MG BID ORAL
     Route: 048
     Dates: start: 20090918, end: 20100114
  2. LAMOTRIGINE [Concomitant]

REACTIONS (2)
  - PRURITUS GENITAL [None]
  - STAPHYLOCOCCAL INFECTION [None]
